FAERS Safety Report 7595428-5 (Version None)
Quarter: 2011Q3

REPORT INFORMATION
  Report Type: 
  Country: None (occurrence: None)
  Receive Date: 20110707
  Receipt Date: 20110627
  Transmission Date: 20111222
  Serious: Yes (Other)
  Sender: FDA-Public Use
  Company Number: DK-ROCHE-786574

PATIENT

DRUGS (4)
  1. METHOTREXATE [Concomitant]
     Indication: RHEUMATOID ARTHRITIS
  2. PREDNISOLONE [Concomitant]
     Indication: RHEUMATOID ARTHRITIS
  3. TOCILIZUMAB [Suspect]
     Indication: RHEUMATOID ARTHRITIS
     Route: 065
  4. ABATACEPT [Suspect]
     Indication: RHEUMATOID ARTHRITIS
     Route: 065

REACTIONS (7)
  - JAUNDICE [None]
  - CHEST PAIN [None]
  - HYPERSENSITIVITY [None]
  - HEPATIC ENZYME INCREASED [None]
  - PALPITATIONS [None]
  - SKIN CANCER [None]
  - URTICARIA [None]
